FAERS Safety Report 22960360 (Version 3)
Quarter: 2023Q4

REPORT INFORMATION
  Report Type: Spontaneous
  Country: US (occurrence: None)
  Receive Date: 20230920
  Receipt Date: 20231106
  Transmission Date: 20240110
  Serious: No
  Sender: FDA-Public Use
  Company Number: 2023A213031

PATIENT
  Age: 22908 Day
  Sex: Female

DRUGS (1)
  1. BYDUREON BCISE [Suspect]
     Active Substance: EXENATIDE
     Dosage: 2.0MG UNKNOWN
     Dates: start: 20230916

REACTIONS (7)
  - Wrong technique in device usage process [Unknown]
  - Device use issue [Unknown]
  - Device breakage [Unknown]
  - Needle issue [Unknown]
  - Device delivery system issue [Unknown]
  - Device defective [Unknown]
  - Off label use [Unknown]

NARRATIVE: CASE EVENT DATE: 20230915
